FAERS Safety Report 25944599 (Version 1)
Quarter: 2025Q4

REPORT INFORMATION
  Report Type: Spontaneous
  Country: US (occurrence: US)
  Receive Date: 20251021
  Receipt Date: 20251021
  Transmission Date: 20260118
  Serious: Yes (Death)
  Sender: BLUEPRINT MEDICINES
  Company Number: US-Blueprint Medicines Corporation-2025-AER-02247

PATIENT
  Age: 41 Year
  Sex: Male

DRUGS (1)
  1. AYVAKIT [Suspect]
     Active Substance: AVAPRITINIB
     Indication: Acute myeloid leukaemia
     Route: 065
     Dates: start: 202507, end: 202509

REACTIONS (1)
  - Death [Fatal]

NARRATIVE: CASE EVENT DATE: 20250901
